FAERS Safety Report 25540185 (Version 2)
Quarter: 2025Q3

REPORT INFORMATION
  Report Type: Spontaneous
  Country: EU (occurrence: EU)
  Receive Date: 20250710
  Receipt Date: 20250802
  Transmission Date: 20251020
  Serious: Yes (Hospitalization, Other)
  Sender: ALEXION PHARMACEUTICALS
  Company Number: 2025008253-000

PATIENT
  Age: 43 Year
  Sex: Female
  Weight: 77 kg

DRUGS (8)
  1. OMEPRAZOLE [Suspect]
     Active Substance: OMEPRAZOLE
     Indication: Prophylaxis against gastrointestinal ulcer
  2. KEYTRUDA [Suspect]
     Active Substance: PEMBROLIZUMAB
  3. PANTOPRAZOLE [Concomitant]
     Active Substance: PANTOPRAZOLE
  4. CARBOPLATIN [Concomitant]
     Active Substance: CARBOPLATIN
  5. PACLITAXEL [Concomitant]
     Active Substance: PACLITAXEL
  6. PREDNISONE [Concomitant]
     Active Substance: PREDNISONE
  7. APREPITANT [Concomitant]
     Active Substance: APREPITANT
  8. ONDANSETRON [Concomitant]
     Active Substance: ONDANSETRON

REACTIONS (8)
  - Gastrointestinal toxicity [Recovered/Resolved]
  - Nephritis allergic [Recovering/Resolving]
  - Drug-induced liver injury [Recovered/Resolved]
  - Rash maculo-papular [Recovered/Resolved]
  - Hyperthyroidism [Unknown]
  - Weight decreased [Unknown]
  - General physical health deterioration [Unknown]
  - Nephropathy [Unknown]

NARRATIVE: CASE EVENT DATE: 20250101
